FAERS Safety Report 7457562-X (Version None)
Quarter: 2011Q2

REPORT INFORMATION
  Report Type: 
  Country: None (occurrence: None)
  Receive Date: 20110504
  Receipt Date: 20101119
  Transmission Date: 20111010
  Serious: Yes (Other)
  Sender: FDA-Public Use
  Company Number: US-SANOFI-AVENTIS-2010SA071056

PATIENT
  Age: 72 Year
  Sex: Female

DRUGS (4)
  1. APIDRA [Suspect]
     Dosage: SLIDING SCALE
     Route: 058
     Dates: start: 20100901
  2. SOLOSTAR [Suspect]
     Dates: start: 20100901
  3. LANTUS [Concomitant]
     Dosage: DOSE:17 UNIT(S)
     Route: 058
  4. SOLOSTAR [Concomitant]

REACTIONS (3)
  - BLOOD PRESSURE DECREASED [None]
  - DRUG INEFFECTIVE [None]
  - DIZZINESS [None]
